FAERS Safety Report 5754716-5 (Version None)
Quarter: 2008Q2

REPORT INFORMATION
  Report Type: 
  Country: None (occurrence: None)
  Receive Date: 20080530
  Receipt Date: 20080521
  Transmission Date: 20081010
  Serious: Yes (Other)
  Sender: FDA-Public Use
  Company Number: DE-PFIZER INC-2008044319

PATIENT
  Sex: Male

DRUGS (1)
  1. ZITHROMAX [Suspect]
     Indication: SINUSITIS
     Route: 048
     Dates: start: 20080301, end: 20080301

REACTIONS (1)
  - APLASTIC ANAEMIA [None]
